FAERS Safety Report 25469281 (Version 1)
Quarter: 2025Q2

REPORT INFORMATION
  Report Type: Spontaneous
  Country: US (occurrence: US)
  Receive Date: 20250623
  Receipt Date: 20250623
  Transmission Date: 20250716
  Serious: Yes (Other)
  Sender: B BRAUN
  Company Number: US-B.Braun Medical Inc.-2179209

PATIENT
  Age: 66 Year
  Sex: Male
  Weight: 68.182 kg

DRUGS (1)
  1. BUPIVACAINE HYDROCHLORIDE [Suspect]
     Active Substance: BUPIVACAINE HYDROCHLORIDE

REACTIONS (2)
  - Drug ineffective [Unknown]
  - Anaesthetic complication [Unknown]
